FAERS Safety Report 5326353-8 (Version None)
Quarter: 2007Q2

REPORT INFORMATION
  Report Type: 
  Country: None (occurrence: None)
  Receive Date: 20070516
  Receipt Date: 20070509
  Transmission Date: 20071010
  Serious: Yes (Hospitalization)
  Sender: FDA-Public Use
  Company Number: B0434666A

PATIENT
  Age: 84 Year
  Sex: Female

DRUGS (6)
  1. CEPHALEXIN [Suspect]
     Indication: URINARY TRACT INFECTION
     Route: 048
  2. TRIMETHOPRIN [Suspect]
     Indication: URINARY TRACT INFECTION
     Dosage: 200MG UNKNOWN
     Route: 048
     Dates: start: 20060623
  3. BENDROFLUMETHIAZIDE [Concomitant]
     Indication: HYPERTENSION
     Route: 048
  4. OMEPRAZOLE [Concomitant]
     Route: 048
  5. PARACETAMOL [Concomitant]
     Dosage: 1G AS REQUIRED
     Route: 048
  6. PROPRANOLOL [Concomitant]
     Route: 048

REACTIONS (2)
  - ERYTHEMA MULTIFORME [None]
  - RASH [None]
